FAERS Safety Report 6304918-4 (Version None)
Quarter: 2009Q3

REPORT INFORMATION
  Report Type: 
  Country: None (occurrence: None)
  Receive Date: 20090811
  Receipt Date: 20090804
  Transmission Date: 20100115
  Serious: Yes (Hospitalization)
  Sender: FDA-Public Use
  Company Number: GB-TEVA-205173ISR

PATIENT
  Age: 73 Year
  Sex: Female

DRUGS (1)
  1. LAMOTRIGINE [Suspect]
     Indication: BIPOLAR DISORDER

REACTIONS (6)
  - AGITATION [None]
  - DELUSION [None]
  - LETHARGY [None]
  - PERSONALITY CHANGE [None]
  - RENAL FAILURE [None]
  - WEIGHT DECREASED [None]
